FAERS Safety Report 5869153-2 (Version None)
Quarter: 2008Q3

REPORT INFORMATION
  Report Type: 
  Country: None (occurrence: None)
  Receive Date: 20080903
  Receipt Date: 20080825
  Transmission Date: 20090109
  Serious: Yes (Hospitalization)
  Sender: FDA-Public Use
  Company Number: BR-ABBOTT-08P-020-0472765-00

PATIENT
  Age: 20 Year
  Sex: Male

DRUGS (4)
  1. DEPAKENE [Suspect]
     Indication: EPILEPSY
     Route: 048
     Dates: start: 20050101, end: 20050101
  2. DEPAKENE [Suspect]
     Dosage: 500MG
  3. DEPAKENE [Suspect]
     Dosage: 500MG
     Dates: end: 20050101
  4. PHENYTOIN [Concomitant]
     Indication: EPILEPSY
     Dosage: 300MG TOTAL DAILY DOSE; 3 TABS PER DAY
     Route: 048
     Dates: start: 20040101

REACTIONS (1)
  - UNEVALUABLE EVENT [None]
